FAERS Safety Report 10090345 (Version 2)
Quarter: 2014Q2

REPORT INFORMATION
  Report Type: Spontaneous
  Country: US (occurrence: US)
  Receive Date: 20140421
  Receipt Date: 20140422
  Transmission Date: 20141212
  Serious: Yes (Hospitalization)
  Sender: FDA-Public Use
  Company Number: US-BAYER-2014-056280

PATIENT
  Age: 46 Year
  Sex: Female
  Weight: 94.79 kg

DRUGS (7)
  1. YAZ [Suspect]
  2. GIANVI [Suspect]
  3. ALBUTEROL INHALER [Concomitant]
     Dosage: UNK UNK, PRN
  4. ACYCLOVIR [ACICLOVIR] [Concomitant]
     Dosage: UNK UNK, PRN
  5. CLOBEX [Concomitant]
     Dosage: 0.05 %, SPRAY
  6. IMITREX [Concomitant]
     Dosage: 100 MG, PRN
  7. ZYRTEC [Concomitant]
     Dosage: UNK UNK, PRN

REACTIONS (2)
  - Pulmonary embolism [Recovering/Resolving]
  - Deep vein thrombosis [Recovered/Resolved]
